FAERS Safety Report 6282355-9 (Version None)
Quarter: 2009Q3

REPORT INFORMATION
  Report Type: 
  Country: None (occurrence: None)
  Receive Date: 20090724
  Receipt Date: 20090713
  Transmission Date: 20100115
  Serious: Yes (Other)
  Sender: FDA-Public Use
  Company Number: CA-JNJFOC-20090704404

PATIENT
  Age: 71 Year
  Sex: Female

DRUGS (1)
  1. CAELYX [Suspect]
     Indication: NEOPLASM MALIGNANT
     Route: 042

REACTIONS (9)
  - BLISTER [None]
  - BURNING SENSATION [None]
  - DISTURBANCE IN ATTENTION [None]
  - ERYTHEMA [None]
  - INSOMNIA [None]
  - OEDEMA PERIPHERAL [None]
  - PAIN [None]
  - SKIN EXFOLIATION [None]
  - SUICIDAL IDEATION [None]
